FAERS Safety Report 25504628 (Version 1)
Quarter: 2025Q3

REPORT INFORMATION
  Report Type: Other
  Country: CN (occurrence: CN)
  Receive Date: 20250702
  Receipt Date: 20250702
  Transmission Date: 20251021
  Serious: Yes (Other)
  Sender: INCYTE
  Company Number: CN-002147023-NVSC2025CN103146

PATIENT
  Age: 42 Year

DRUGS (6)
  1. RUXOLITINIB [Suspect]
     Active Substance: RUXOLITINIB
     Indication: Chemotherapy
     Dosage: 300.000 MG, QD
  2. PEGASPARGASE [Suspect]
     Active Substance: PEGASPARGASE
     Indication: Chemotherapy
     Dosage: 2.000 ML, QD
  3. MERCAPTOPURINE [Suspect]
     Active Substance: MERCAPTOPURINE
     Indication: Chemotherapy
     Dosage: 100.000 MG, QD
  4. CYTARABINE [Suspect]
     Active Substance: CYTARABINE
     Indication: Chemotherapy
     Dosage: 3.000 G, BID
  5. SODIUM CHLORIDE [Concomitant]
     Active Substance: SODIUM CHLORIDE
     Indication: Chemotherapy
     Dosage: 500.000 ML, BID
  6. AZACITIDINE [Concomitant]
     Active Substance: AZACITIDINE
     Indication: Chemotherapy
     Dosage: 3 G, Q12H
     Route: 065

REACTIONS (3)
  - White blood cell count decreased [Recovering/Resolving]
  - Granulocyte count decreased [Recovering/Resolving]
  - Platelet count decreased [Recovering/Resolving]
